FAERS Safety Report 8242927-9 (Version None)
Quarter: 2012Q1

REPORT INFORMATION
  Report Type: 
  Country: None (occurrence: None)
  Receive Date: 20120329
  Receipt Date: 20120329
  Transmission Date: 20120608
  Serious: Yes (Hospitalization)
  Sender: FDA-Public Use
  Company Number: None

PATIENT
  Age: 6 Year
  Sex: Male
  Weight: 34.473 kg

DRUGS (2)
  1. SINGULAIR [Suspect]
     Indication: NASOPHARYNGITIS
     Route: 048
     Dates: start: 20120312, end: 20120322
  2. SINGULAIR [Suspect]
     Indication: RESPIRATORY TRACT INFECTION
     Route: 048
     Dates: start: 20120312, end: 20120322

REACTIONS (4)
  - HALLUCINATION [None]
  - ANGER [None]
  - DELUSION [None]
  - PARANOIA [None]
